FAERS Safety Report 18817336 (Version 5)
Quarter: 2022Q1

REPORT INFORMATION
  Report Type: Report from Study
  Country: US (occurrence: US)
  Receive Date: 20210201
  Receipt Date: 20220112
  Transmission Date: 20220423
  Serious: Yes (Hospitalization, Other)
  Sender: FDA-Public Use
  Company Number: NVSC2021US011559

PATIENT
  Age: 61 Year
  Sex: Male

DRUGS (3)
  1. ENTRESTO [Suspect]
     Active Substance: SACUBITRIL\VALSARTAN
     Indication: Cardiac failure
     Dosage: 49.51 MG, OTHER
     Route: 048
     Dates: start: 20190101
  2. ELIQUIS [Concomitant]
     Active Substance: APIXABAN
     Indication: Product used for unknown indication
     Dosage: UNK
     Route: 065
  3. ASPIRIN [Concomitant]
     Active Substance: ASPIRIN
     Indication: Product used for unknown indication
     Dosage: UNK
     Route: 065

REACTIONS (13)
  - Fluid retention [Unknown]
  - Dyspnoea [Unknown]
  - Blood glucose increased [Unknown]
  - Lung disorder [Unknown]
  - Thirst [Unknown]
  - Diabetes mellitus [Unknown]
  - Blood glucose abnormal [Unknown]
  - Memory impairment [Unknown]
  - Nasopharyngitis [Unknown]
  - Confusional state [Unknown]
  - Anxiety [Unknown]
  - Fear of death [Unknown]
  - Wrong technique in product usage process [Unknown]

NARRATIVE: CASE EVENT DATE: 20200101
